FAERS Safety Report 4613001-5 (Version None)
Quarter: 2005Q1

REPORT INFORMATION
  Report Type: 
  Country: None (occurrence: None)
  Receive Date: 20050318
  Receipt Date: 20050310
  Transmission Date: 20050727
  Serious: Yes (Other)
  Sender: FDA-Public Use
  Company Number: IN-ABBOTT-05P-078-0293897-00

PATIENT
  Age: 31 Year
  Sex: Male

DRUGS (3)
  1. VALPROATE SODIUM [Suspect]
     Indication: BIPOLAR DISORDER
     Dates: start: 19980101
  2. CHLORPROMAZINE [Suspect]
     Indication: PSYCHOTIC DISORDER
     Dates: start: 20021101
  3. HALOPERIDOL [Suspect]
     Indication: PSYCHOTIC DISORDER
     Dates: start: 20021101

REACTIONS (6)
  - DIABETIC KETOACIDOSIS [None]
  - EUPHORIC MOOD [None]
  - IRRITABILITY [None]
  - PANCREATITIS ACUTE [None]
  - RESTLESSNESS [None]
  - SLEEP DISORDER [None]
